FAERS Safety Report 9980803 (Version 1)
Quarter: 2014Q1

REPORT INFORMATION
  Report Type: Spontaneous
  Country: US (occurrence: US)
  Receive Date: 20140307
  Receipt Date: 20140307
  Transmission Date: 20141002
  Serious: Yes (Other)
  Sender: FDA-Public Use
  Company Number: US-BRISTOL-MYERS SQUIBB COMPANY-20325775

PATIENT
  Age: 65 Year
  Sex: Male
  Weight: 106.57 kg

DRUGS (1)
  1. BYETTA PEN DISPOSABLE [Suspect]
     Indication: TYPE 2 DIABETES MELLITUS
     Dosage: 5MCG BID -2005?10MCG BID
     Dates: start: 2005

REACTIONS (3)
  - Hypoglycaemia [Unknown]
  - Depression [Unknown]
  - Drug ineffective [Unknown]
